FAERS Safety Report 5077857-7 (Version None)
Quarter: 2006Q3

REPORT INFORMATION
  Report Type: 
  Country: None (occurrence: None)
  Receive Date: 20060720
  Receipt Date: 20051108
  Transmission Date: 20061208
  Serious: Yes (Hospitalization)
  Sender: FDA-Public Use
  Company Number: 05FRA0247

PATIENT
  Age: 55 Year
  Sex: Male

DRUGS (7)
  1. AGGRASTAT [Suspect]
     Indication: ACUTE CORONARY SYNDROME
     Dosage: SEE IMAGE
     Dates: start: 20051012, end: 20051012
  2. AGGRASTAT [Suspect]
     Indication: ACUTE CORONARY SYNDROME
     Dosage: 1 MG/KG/MIN X 2 DAYS
     Dates: start: 20051012, end: 20051013
  3. HEPARIN [Suspect]
     Indication: ACUTE CORONARY SYNDROME
     Dates: start: 20051012, end: 20051013
  4. CLOPIDOGREL BISULPHATE (CLOPIDOGREL SULFATE) (75 MILLIGRAM, TABLETS) [Suspect]
     Indication: ACUTE CORONARY SYNDROME
     Dosage: 75 MG/DAILY
     Dates: start: 20051012, end: 20051012
  5. ALLOPURINOL [Concomitant]
  6. ASPIRIN [Concomitant]
  7. GLYBURIDE [Concomitant]

REACTIONS (1)
  - THROMBOCYTOPENIA [None]
